FAERS Safety Report 13061528 (Version 1)
Quarter: 2016Q4

REPORT INFORMATION
  Report Type: Spontaneous
  Country: US (occurrence: US)
  Receive Date: 20161226
  Receipt Date: 20161226
  Transmission Date: 20170207
  Serious: No
  Sender: FDA-Public Use
  Company Number: US-NOVEN PHARMACEUTICALS, INC.-US2016000202

PATIENT

DRUGS (4)
  1. CLONIDINE. [Concomitant]
     Active Substance: CLONIDINE
     Indication: BLOOD PRESSURE INCREASED
  2. MINIVELLE [Suspect]
     Active Substance: ESTRADIOL
     Indication: HORMONE LEVEL ABNORMAL
     Dosage: 0.075 MG, UNKNOWN
     Route: 062
     Dates: start: 20160204
  3. ATIVAN [Concomitant]
     Active Substance: LORAZEPAM
     Indication: ANXIETY
     Dosage: 1 MG, UNK
  4. ZEGERID [Concomitant]
     Active Substance: OMEPRAZOLE\SODIUM BICARBONATE
     Indication: ABDOMINAL DISCOMFORT

REACTIONS (2)
  - Musculoskeletal stiffness [Recovered/Resolved]
  - Heart rate increased [Recovered/Resolved]

NARRATIVE: CASE EVENT DATE: 20160207
